FAERS Safety Report 7174849-9 (Version None)
Quarter: 2010Q4

REPORT INFORMATION
  Report Type: 
  Country: None (occurrence: None)
  Receive Date: 20101219
  Receipt Date: 20100607
  Transmission Date: 20110411
  Serious: No
  Sender: FDA-Public Use
  Company Number: US-AMGEN-KDL404213

PATIENT

DRUGS (12)
  1. ENBREL [Suspect]
     Indication: PRODUCT USED FOR UNKNOWN INDICATION
     Dosage: 50 MG, QWK
     Route: 058
  2. CENTRUM [Concomitant]
     Dosage: UNK UNK, UNK
  3. ESTROGENS CONJUGATED [Concomitant]
     Dosage: .625 MG, UNK
  4. METHOTREXATE [Concomitant]
     Dosage: 2.5 MG, UNK
  5. PREDNISONE [Concomitant]
     Dosage: 5 MG, UNK
  6. TRAMADOL HYDROCHLORIDE [Concomitant]
     Dosage: 50 MG, UNK
  7. METOPROLOL TARTRATE [Concomitant]
     Dosage: 50 MG, UNK
  8. LISINOPRIL [Concomitant]
     Dosage: 40 MG, UNK
  9. OMEPRAZOLE [Concomitant]
     Dosage: 20 MG, UNK
  10. FOLIC ACID [Concomitant]
     Dosage: 1 MG, UNK
  11. HYDROCHLOROTHIAZIDE [Concomitant]
     Dosage: 50 MG, UNK
  12. MELOXICAM [Concomitant]
     Dosage: 15 MG, UNK

REACTIONS (7)
  - INJECTION SITE ERYTHEMA [None]
  - INJECTION SITE PRURITUS [None]
  - INJECTION SITE REACTION [None]
  - INJECTION SITE VESICLES [None]
  - LOCAL SWELLING [None]
  - PRODUCTIVE COUGH [None]
  - RASH ERYTHEMATOUS [None]
